FAERS Safety Report 5843082-2 (Version None)
Quarter: 2008Q3

REPORT INFORMATION
  Report Type: 
  Country: None (occurrence: None)
  Receive Date: 20080812
  Receipt Date: 20080812
  Transmission Date: 20090109
  Serious: No
  Sender: FDA-Public Use
  Company Number: None

PATIENT
  Age: 21 Year
  Sex: Male
  Weight: 86.1834 kg

DRUGS (1)
  1. VALTREX [Suspect]
     Indication: HERPES VIRUS INFECTION
     Dosage: ONE TABLET  3X DAILY FOR 7 DAY PO
     Route: 048
     Dates: start: 20080805, end: 20080811

REACTIONS (2)
  - PRURITUS [None]
  - URTICARIA [None]
